FAERS Safety Report 7219833-1 (Version None)
Quarter: 2011Q1

REPORT INFORMATION
  Report Type: 
  Country: None (occurrence: None)
  Receive Date: 20110111
  Receipt Date: 20110104
  Transmission Date: 20110831
  Serious: Yes (Other)
  Sender: FDA-Public Use
  Company Number: ZA-JNJCH-2010026840

PATIENT
  Age: 47 Year
  Sex: Male
  Weight: 94 kg

DRUGS (1)
  1. KIRKLAND SIGNATURE 5% [Suspect]
     Indication: ALOPECIA
     Dosage: TEXT:TWO MILLILITERS ONCE A DAY
     Route: 061
     Dates: start: 20101110, end: 20101111

REACTIONS (4)
  - HYPERSENSITIVITY [None]
  - ANXIETY [None]
  - MEDICATION ERROR [None]
  - OFF LABEL USE [None]
